FAERS Safety Report 25455338 (Version 1)
Quarter: 2025Q2

REPORT INFORMATION
  Report Type: Spontaneous
  Country: US (occurrence: US)
  Receive Date: 20250619
  Receipt Date: 20250619
  Transmission Date: 20250716
  Serious: No
  Sender: EISAI
  Company Number: US-Eisai-EC-2025-191020

PATIENT
  Age: 75 Year
  Sex: Male

DRUGS (1)
  1. LEQEMBI [Suspect]
     Active Substance: LECANEMAB-IRMB
     Indication: Dementia Alzheimer^s type

REACTIONS (5)
  - Headache [Unknown]
  - Pain [Unknown]
  - Neck pain [Unknown]
  - Pruritus [Unknown]
  - Hypersensitivity [Unknown]
